FAERS Safety Report 9889700 (Version 1)
Quarter: 2014Q1

REPORT INFORMATION
  Report Type: Spontaneous
  Country: ZA (occurrence: GB)
  Receive Date: 20140211
  Receipt Date: 20140211
  Transmission Date: 20141002
  Serious: Yes (Death)
  Sender: FDA-Public Use
  Company Number: ZA-MYLANLABS-2014S1002402

PATIENT
  Sex: Male
  Weight: 1.28 kg

DRUGS (7)
  1. PREDNISOLONE [Suspect]
     Route: 064
  2. ENALAPRIL [Suspect]
     Route: 064
  3. ATENOLOL [Suspect]
     Route: 064
  4. AZATHIOPRINE [Suspect]
     Route: 064
  5. ADRENALINE [Suspect]
  6. DOBUTAMINE HCL [Suspect]
  7. DOPAMINE [Suspect]

REACTIONS (9)
  - Foetal exposure during pregnancy [Recovered/Resolved]
  - Drug ineffective [Not Recovered/Not Resolved]
  - Growth retardation [Not Recovered/Not Resolved]
  - Pulmonary hypoplasia [Not Recovered/Not Resolved]
  - Muscle contracture [Not Recovered/Not Resolved]
  - Renal failure [Fatal]
  - Skull malformation [Not Recovered/Not Resolved]
  - Hypotension [Not Recovered/Not Resolved]
  - Anuria [Not Recovered/Not Resolved]
